FAERS Safety Report 7605402-8 (Version None)
Quarter: 2011Q3

REPORT INFORMATION
  Report Type: 
  Country: None (occurrence: None)
  Receive Date: 20110713
  Receipt Date: 20110629
  Transmission Date: 20111222
  Serious: Yes (Hospitalization, Other)
  Sender: FDA-Public Use
  Company Number: US-BAYER-201031410NA

PATIENT
  Age: 37 Year
  Sex: Female
  Weight: 61.224 kg

DRUGS (2)
  1. IBUPROFEN [Concomitant]
  2. YAZ [Suspect]
     Indication: PREMENSTRUAL SYNDROME
     Dosage: UNK UNK, QD
     Route: 048
     Dates: start: 20081201, end: 20090501

REACTIONS (4)
  - PULMONARY EMBOLISM [None]
  - ATRIAL SEPTAL DEFECT [None]
  - CARDIOMEGALY [None]
  - SYNCOPE [None]
